FAERS Safety Report 8154061-7 (Version None)
Quarter: 2012Q1

REPORT INFORMATION
  Report Type: 
  Country: None (occurrence: None)
  Receive Date: 20120221
  Receipt Date: 20120209
  Transmission Date: 20120608
  Serious: Yes (Other)
  Sender: FDA-Public Use
  Company Number: JP-BRISTOL-MYERS SQUIBB COMPANY-16270753

PATIENT

DRUGS (2)
  1. ABILIFY [Suspect]
     Route: 048
  2. ZOLOFT [Concomitant]
     Dosage: TAB.

REACTIONS (2)
  - HEREDITARY PANCREATITIS [None]
  - AUTOIMMUNE DISORDER [None]
